FAERS Safety Report 14017280 (Version 1)
Quarter: 2017Q3

REPORT INFORMATION
  Report Type: Spontaneous
  Country: US (occurrence: US)
  Receive Date: 20170927
  Receipt Date: 20170927
  Transmission Date: 20171128
  Serious: Yes (Other)
  Sender: FDA-Public Use
  Company Number: US-MYLANLABS-2017M1059807

PATIENT
  Age: 74 Year
  Sex: Female

DRUGS (2)
  1. TAMOXIFEN [Concomitant]
     Active Substance: TAMOXIFEN
     Indication: PRODUCT USED FOR UNKNOWN INDICATION
     Route: 065
  2. AZACITIDINE. [Suspect]
     Active Substance: AZACITIDINE
     Indication: MYELODYSPLASTIC SYNDROME
     Dosage: 50 MG/M2 FOR 7 DAYS OF A 28 DAY CYCLE (7 INJECTIONS)
     Route: 058
     Dates: start: 201503

REACTIONS (1)
  - Injection site photosensitivity reaction [Recovered/Resolved]

NARRATIVE: CASE EVENT DATE: 201510
